FAERS Safety Report 16964716 (Version 1)
Quarter: 2019Q4

REPORT INFORMATION
  Report Type: Report from Study
  Country: None (occurrence: HU)
  Receive Date: 20191028
  Receipt Date: 20191028
  Transmission Date: 20200122
  Serious: Yes (Hospitalization)
  Sender: FDA-Public Use
  Company Number: HU-ABBVIE-19K-076-2978810-00

PATIENT
  Age: 42 Year
  Sex: Male

DRUGS (1)
  1. DUODOPA [Suspect]
     Active Substance: CARBIDOPA\LEVODOPA
     Indication: PARKINSON^S DISEASE
     Dosage: CD  DURING THE DAY 2.3 ML/H; CONTINUOUS DOSE  DURING THE NIGHT 2.0 ML/H; EXTRA DOSE 2.0 ML
     Route: 050
     Dates: start: 20151008

REACTIONS (4)
  - Sluggishness [Unknown]
  - Freezing phenomenon [Unknown]
  - Parkinson^s disease [Not Recovered/Not Resolved]
  - Hyperkinesia [Unknown]

NARRATIVE: CASE EVENT DATE: 201907
